FAERS Safety Report 6171505-0 (Version None)
Quarter: 2009Q2

REPORT INFORMATION
  Report Type: 
  Country: None (occurrence: None)
  Receive Date: 20090427
  Receipt Date: 20090409
  Transmission Date: 20091009
  Serious: Yes (Hospitalization, Other)
  Sender: FDA-Public Use
  Company Number: APP200900185

PATIENT
  Age: 62 Year
  Sex: Male
  Weight: 69.7 kg

DRUGS (6)
  1. DEXAMETHASONE SODIUM PHOSPHATE [Suspect]
     Indication: DRUG USE FOR UNKNOWN INDICATION
  2. CP-751,871 [Suspect]
     Indication: NON-SMALL CELL LUNG CANCER
     Dosage: 1550 MG, EVERY 3 WEEKS, INTRAVENOUS
     Route: 042
     Dates: start: 20081222, end: 20081222
  3. PACLITAXEL [Suspect]
     Indication: NON-SMALL CELL LUNG CANCER
     Dosage: 400 MG, EVERY 3 WEEKS, INTRAVENOUS
     Route: 042
     Dates: start: 20081222
  4. CARBOPLATIN [Suspect]
     Indication: NON-SMALL CELL LUNG CANCER
     Dosage: 870 MG, EVERY 3 WEEKS, INTRAVENOUS
     Route: 042
     Dates: start: 20081222
  5. METFORMIN HCL [Concomitant]
  6. ZOCOR [Concomitant]

REACTIONS (7)
  - BLOOD UREA ABNORMAL [None]
  - HYPERGLYCAEMIA [None]
  - LEUKOPENIA [None]
  - NEUTROPENIA [None]
  - ORAL CANDIDIASIS [None]
  - THROMBOCYTOPENIA [None]
  - UNEVALUABLE EVENT [None]
